FAERS Safety Report 9717567 (Version 1)
Quarter: 2013Q4

REPORT INFORMATION
  Report Type: Report from Study
  Country: US (occurrence: US)
  Receive Date: 20131127
  Receipt Date: 20131127
  Transmission Date: 20140711
  Serious: Yes (Hospitalization)
  Sender: FDA-Public Use
  Company Number: US-GLAXOSMITHKLINE-A1051333A

PATIENT
  Age: 71 Year
  Sex: Female

DRUGS (3)
  1. OFATUMUMAB [Suspect]
     Indication: CHRONIC LYMPHOCYTIC LEUKAEMIA
     Dosage: 1000MG MONTHLY
     Route: 042
     Dates: start: 20130801
  2. INVESTIGATIONAL DRUG [Suspect]
     Indication: CHRONIC LYMPHOCYTIC LEUKAEMIA
     Dosage: 150MG PER DAY
     Route: 048
     Dates: start: 20130801
  3. MAGNESIUM OXIDE [Concomitant]
     Dates: start: 20130822, end: 20131021

REACTIONS (2)
  - Pyrexia [Not Recovered/Not Resolved]
  - Nausea [Not Recovered/Not Resolved]
